FAERS Safety Report 13653341 (Version 1)
Quarter: 2017Q2

REPORT INFORMATION
  Report Type: Spontaneous
  Country: US (occurrence: US)
  Receive Date: 20170614
  Receipt Date: 20170614
  Transmission Date: 20170830
  Serious: No
  Sender: FDA-Public Use
  Company Number: US-ROCHE-1333605

PATIENT
  Sex: Female
  Weight: 55.84 kg

DRUGS (2)
  1. XELODA [Suspect]
     Active Substance: CAPECITABINE
     Route: 048
     Dates: start: 20140209
  2. XELODA [Suspect]
     Active Substance: CAPECITABINE
     Indication: BREAST CANCER
     Route: 048
     Dates: start: 20131023, end: 20140208

REACTIONS (6)
  - Nausea [Unknown]
  - Skin fissures [Recovering/Resolving]
  - Dry skin [Recovering/Resolving]
  - Diarrhoea [Recovering/Resolving]
  - Vomiting [Unknown]
  - Palmar-plantar erythrodysaesthesia syndrome [Recovering/Resolving]
